FAERS Safety Report 10639264 (Version 3)
Quarter: 2016Q2

REPORT INFORMATION
  Report Type: Report from Study
  Country: US (occurrence: US)
  Receive Date: 20141208
  Receipt Date: 20160408
  Transmission Date: 20160815
  Serious: Yes (Hospitalization)
  Sender: FDA-Public Use
  Company Number: US-TAKEDA-2014TUS013245

PATIENT
  Age: 80 Year
  Sex: Female
  Weight: 96.15 kg

DRUGS (12)
  1. PIOGLITAZONE. [Suspect]
     Active Substance: PIOGLITAZONE
     Dosage: 7.5 MG, QD
     Route: 048
     Dates: start: 20111004, end: 20111018
  2. OMEPRAZOLE. [Concomitant]
     Active Substance: OMEPRAZOLE
     Dosage: 20 MG, QD
     Route: 048
  3. PIOGLITAZONE. [Suspect]
     Active Substance: PIOGLITAZONE
     Indication: CARDIOVASCULAR EVENT PROPHYLAXIS
     Dosage: 15 MG, QD
     Route: 048
     Dates: start: 20110707, end: 20110811
  4. PIOGLITAZONE. [Suspect]
     Active Substance: PIOGLITAZONE
     Dosage: 15 MG, QD
     Route: 048
     Dates: start: 20111019, end: 20111030
  5. PIOGLITAZONE. [Suspect]
     Active Substance: PIOGLITAZONE
     Dosage: 30 MG, QD
     Route: 048
     Dates: start: 20111031, end: 20111130
  6. BETAHISTINE [Concomitant]
     Active Substance: BETAHISTINE
     Dosage: 15 MG, PRN
     Route: 048
  7. PIOGLITAZONE. [Suspect]
     Active Substance: PIOGLITAZONE
     Dosage: 45 MG, QD
     Route: 048
     Dates: start: 20110831, end: 20110926
  8. ETODOLAC. [Concomitant]
     Active Substance: ETODOLAC
     Dosage: 300 MG, BID
     Route: 048
  9. PIOGLITAZONE. [Suspect]
     Active Substance: PIOGLITAZONE
     Dosage: 15 MG, QD
     Route: 048
     Dates: start: 20120317, end: 20140617
  10. PIOGLITAZONE. [Suspect]
     Active Substance: PIOGLITAZONE
     Dosage: UNK
  11. PIOGLITAZONE. [Suspect]
     Active Substance: PIOGLITAZONE
     Dosage: 30 MG, QD
     Route: 048
     Dates: start: 20110812, end: 20110830
  12. SINTHROME [Concomitant]
     Active Substance: ACENOCOUMAROL
     Dosage: 1 MG, QD
     Route: 048

REACTIONS (3)
  - Fractured sacrum [Recovering/Resolving]
  - Back pain [Recovering/Resolving]
  - Fall [Recovering/Resolving]

NARRATIVE: CASE EVENT DATE: 20140817
